FAERS Safety Report 11512128 (Version 1)
Quarter: 2015Q3

REPORT INFORMATION
  Report Type: Spontaneous
  Country: US (occurrence: None)
  Receive Date: 20150904
  Receipt Date: 20150904
  Transmission Date: 20151125
  Serious: Yes (Other)
  Sender: FDA-Public Use
  Company Number: 2014-23091

PATIENT
  Age: 64 Year
  Sex: Female
  Weight: 125 kg

DRUGS (1)
  1. FENTANYL-100 (WATSON LABORATORIES) [Suspect]
     Active Substance: FENTANYL
     Indication: PAIN
     Route: 062
     Dates: start: 201509

REACTIONS (3)
  - Paraesthesia [None]
  - Drug withdrawal syndrome [None]
  - Drug dependence [None]
